FAERS Safety Report 4879576-6 (Version None)
Quarter: 2006Q1

REPORT INFORMATION
  Report Type: 
  Country: None (occurrence: None)
  Receive Date: 20060111
  Receipt Date: 20051222
  Transmission Date: 20060701
  Serious: Yes (Hospitalization, Other)
  Sender: FDA-Public Use
  Company Number: GB200512000225

PATIENT
  Age: 67 Year
  Sex: Female
  Weight: 58.0151 kg

DRUGS (3)
  1. FORSTEO             (TERIPARATIDE) [Suspect]
     Indication: OSTEOPOROSIS
     Dosage: 20 UG DAILY (1/D) SUBCUTANEOUS
     Route: 058
     Dates: start: 20040901
  2. LEVOTHYROXINE SODIUM [Concomitant]
  3. CALCICHEW-D3                      (CALCIUM CARBONATE, COLECALCIFEROL) [Concomitant]

REACTIONS (6)
  - BLOOD CALCIUM INCREASED [None]
  - LUNG DISORDER [None]
  - SCAR [None]
  - UTERINE CANCER [None]
  - UTERINE DISORDER [None]
  - VAGINAL DISORDER [None]
